FAERS Safety Report 11029951 (Version 1)
Quarter: 2015Q2

REPORT INFORMATION
  Report Type: Report from Study
  Country: US (occurrence: US)
  Receive Date: 20150415
  Receipt Date: 20150415
  Transmission Date: 20150821
  Serious: Yes (Death)
  Sender: FDA-Public Use
  Company Number: US-BIOGENIDEC-2015BI046516

PATIENT
  Sex: Male

DRUGS (7)
  1. HYDROCODONE-HOMATROPINE [Concomitant]
  2. TECFIDERA [Suspect]
     Active Substance: DIMETHYL FUMARATE
     Indication: MULTIPLE SCLEROSIS
     Route: 048
     Dates: start: 201309
  3. CARBAMAZEPINE XR [Concomitant]
  4. BACLOFEN. [Concomitant]
     Active Substance: BACLOFEN
  5. OXYBUTYNIN [Concomitant]
     Active Substance: OXYBUTYNIN
  6. VITAMIN D3 [Concomitant]
     Active Substance: CHOLECALCIFEROL
  7. MORPHINE SULF CR [Concomitant]

REACTIONS (1)
  - Death [Fatal]
